FAERS Safety Report 15439872 (Version 1)
Quarter: 2018Q3

REPORT INFORMATION
  Report Type: Spontaneous
  Country: DE (occurrence: DE)
  Receive Date: 20180928
  Receipt Date: 20180928
  Transmission Date: 20181010
  Serious: Yes (Death)
  Sender: FDA-Public Use
  Company Number: DE-TEVA-2018-DE-959233

PATIENT
  Age: 94 Year
  Sex: Female
  Weight: 55 kg

DRUGS (11)
  1. CLEXANE [Concomitant]
     Active Substance: ENOXAPARIN SODIUM
     Dosage: 140 MILLIGRAM DAILY; DAILY DOSE: 140 MG MILLGRAM(S) EVERY DAYS
     Route: 058
  2. METAMIZOL [Concomitant]
     Active Substance: METAMIZOLE SODIUM
     Indication: PAIN
     Dosage: 1000 MILLIGRAM DAILY; DAILY DOSE: 1000 MG MILLGRAM(S) EVERY DAYS
     Route: 048
  3. BISOPROLOL [Concomitant]
     Active Substance: BISOPROLOL
     Indication: TACHYARRHYTHMIA
     Dosage: 5 MILLIGRAM DAILY; DAILY DOSE: 5 MG MILLGRAM(S) EVERY DAYS
     Route: 048
  4. FUROSEMID [Concomitant]
     Active Substance: FUROSEMIDE
     Route: 048
     Dates: end: 20180825
  5. AMIODARONE [Suspect]
     Active Substance: AMIODARONE
     Indication: TACHYARRHYTHMIA
     Route: 041
  6. RIVAROXABAN [Concomitant]
     Active Substance: RIVAROXABAN
     Route: 048
     Dates: end: 20180828
  7. INSULIN GLARGIN [Concomitant]
     Active Substance: INSULIN GLARGINE
     Indication: TYPE 2 DIABETES MELLITUS
     Dosage: 6 IU (INTERNATIONAL UNIT) DAILY; DAILY DOSE: 6 IU INTERNATIONAL UNIT(S) EVERY DAYS
     Route: 058
  8. MORPHIN [Concomitant]
     Active Substance: MORPHINE
     Route: 058
  9. FUROSEMID [Concomitant]
     Active Substance: FUROSEMIDE
     Dosage: 120 MILLIGRAM DAILY; 80MG? 40 MG ? 0
     Route: 042
  10. RAMIPRIL. [Concomitant]
     Active Substance: RAMIPRIL
     Indication: HYPERTENSION
     Dosage: 5 MILLIGRAM DAILY; DAILY DOSE: 5 MG MILLGRAM(S) EVERY DAYS
     Route: 048
  11. XIPAMID [Concomitant]
     Active Substance: XIPAMIDE
     Indication: CARDIAC FAILURE
     Dosage: 10 MILLIGRAM DAILY; DAILY DOSE: 10 MG MILLGRAM(S) EVERY DAYS
     Route: 048

REACTIONS (2)
  - Cardiac arrest [Fatal]
  - Bradycardia [Fatal]

NARRATIVE: CASE EVENT DATE: 20180830
